FAERS Safety Report 24439037 (Version 2)
Quarter: 2024Q4

REPORT INFORMATION
  Report Type: Spontaneous
  Country: AR (occurrence: AR)
  Receive Date: 20241015
  Receipt Date: 20241017
  Transmission Date: 20250114
  Serious: Yes (Life-Threatening, Hospitalization, Other)
  Sender: NOVARTIS
  Company Number: AR-002147023-NVSC2024AR200402

PATIENT
  Age: 34 Year
  Sex: Female

DRUGS (2)
  1. CARBAMAZEPINE [Suspect]
     Active Substance: CARBAMAZEPINE
     Indication: Product used for unknown indication
     Dosage: UNK
     Route: 065
  2. CLONAZEPAM [Concomitant]
     Active Substance: CLONAZEPAM
     Indication: Personality disorder
     Dosage: UNK
     Route: 048

REACTIONS (7)
  - Drug reaction with eosinophilia and systemic symptoms [Unknown]
  - Dermatosis [Unknown]
  - Rash pruritic [Recovering/Resolving]
  - Pyrexia [Unknown]
  - Rash maculo-papular [Recovering/Resolving]
  - Face oedema [Unknown]
  - Vomiting [Unknown]
